FAERS Safety Report 5934021-4 (Version None)
Quarter: 2008Q4

REPORT INFORMATION
  Report Type: 
  Country: None (occurrence: None)
  Receive Date: 20081029
  Receipt Date: 20081021
  Transmission Date: 20090506
  Serious: Yes (Hospitalization)
  Sender: FDA-Public Use
  Company Number: US-WYE-H06483008

PATIENT
  Sex: Male
  Weight: 110.78 kg

DRUGS (2)
  1. RELISTOR [Suspect]
     Indication: CONSTIPATION
     Route: 058
     Dates: start: 20080929, end: 20081001
  2. AVINZA [Concomitant]
     Indication: PAIN
     Dosage: 30 MG, UNSPECIFIED FREQUENCY

REACTIONS (2)
  - ABDOMINAL PAIN [None]
  - CARDIAC FAILURE CONGESTIVE [None]
